FAERS Safety Report 4681039-8 (Version None)
Quarter: 2005Q2

REPORT INFORMATION
  Report Type: 
  Country: None (occurrence: None)
  Receive Date: 20050601
  Receipt Date: 20050601
  Transmission Date: 20051028
  Serious: No
  Sender: FDA-Public Use
  Company Number: None

PATIENT
  Age: 52 Year
  Sex: Male
  Weight: 90.7194 kg

DRUGS (1)
  1. VIAGRA [Suspect]
     Dates: start: 20020303, end: 20020730

REACTIONS (2)
  - DRUG INEFFECTIVE [None]
  - EYE HAEMORRHAGE [None]
